FAERS Safety Report 8688732 (Version 3)
Quarter: 2013Q1

REPORT INFORMATION
  Report Type: Report from Study
  Country: US (occurrence: US)
  Receive Date: 20120727
  Receipt Date: 20130122
  Transmission Date: 20140127
  Serious: Yes (Disabling)
  Sender: FDA-Public Use
  Company Number: US-ROCHE-1041814

PATIENT
  Age: 52 Year
  Sex: Female
  Weight: 64.5 kg

DRUGS (7)
  1. RO-5466731 [Suspect]
     Indication: CHRONIC HEPATITIS C
     Route: 065
     Dates: start: 20110607, end: 20110824
  2. PEG-INTERFERON ALFA 2A [Suspect]
     Indication: CHRONIC HEPATITIS C
     Route: 058
     Dates: start: 20110607, end: 20110824
  3. RIBAVIRIN [Suspect]
     Indication: CHRONIC HEPATITIS C
     Route: 048
     Dates: start: 20110607, end: 20110824
  4. VITAMIN D [Concomitant]
     Route: 048
  5. ADVIL [Concomitant]
     Indication: PAIN
     Route: 048
     Dates: start: 2011
  6. LAMOTRIGINE [Concomitant]
     Indication: BIPOLAR DISORDER
     Route: 048
     Dates: start: 200603
  7. NEXIUM [Concomitant]
     Indication: DYSPEPSIA
     Route: 048
     Dates: start: 2011

REACTIONS (2)
  - Emotional distress [Recovered/Resolved with Sequelae]
  - Suicidal ideation [Recovered/Resolved with Sequelae]
